FAERS Safety Report 7002594-9 (Version None)
Quarter: 2010Q3

REPORT INFORMATION
  Report Type: 
  Country: None (occurrence: None)
  Receive Date: 20100920
  Receipt Date: 20091217
  Transmission Date: 20110219
  Serious: Yes (Other)
  Sender: FDA-Public Use
  Company Number: US-ASTRAZENECA-2006UW25303

PATIENT
  Age: 37 Year
  Sex: Female
  Weight: 90.7 kg

DRUGS (25)
  1. SEROQUEL [Suspect]
     Indication: DEPRESSION
     Route: 048
     Dates: start: 20051212
  2. SEROQUEL [Suspect]
     Dosage: 100 TO 300 MG
     Route: 048
     Dates: start: 20061101, end: 20070101
  3. ABILIFY [Concomitant]
     Dates: start: 20030101, end: 20060101
  4. GEODON [Concomitant]
     Dates: start: 20070101
  5. HALDOL [Concomitant]
     Dates: start: 20050101, end: 20060101
  6. RISPERDAL [Concomitant]
  7. ZYPREXA [Concomitant]
  8. LEXAPRO [Concomitant]
  9. TRILEPTAL [Concomitant]
  10. ATIVAN [Concomitant]
  11. ELAVIL [Concomitant]
  12. VALIUM [Concomitant]
  13. XANAX [Concomitant]
  14. PAXIL [Concomitant]
  15. KLONOPIN [Concomitant]
  16. LAMICTAL [Concomitant]
  17. DEPAKOTE [Concomitant]
  18. TOPAMAX [Concomitant]
     Dates: start: 20020101
  19. IMITREX [Concomitant]
  20. HYDROCHLOROTHIAZIDE [Concomitant]
  21. DIAZEPAM [Concomitant]
  22. NEURONTIN [Concomitant]
  23. ALBUTEROL [Concomitant]
  24. PEPCID [Concomitant]
  25. MECLIZINE [Concomitant]

REACTIONS (4)
  - DIABETES MELLITUS [None]
  - DIABETES MELLITUS INADEQUATE CONTROL [None]
  - KETOACIDOSIS [None]
  - TYPE 2 DIABETES MELLITUS [None]
